FAERS Safety Report 17698268 (Version 1)
Quarter: 2020Q2

REPORT INFORMATION
  Report Type: Spontaneous
  Country: US (occurrence: US)
  Receive Date: 20200423
  Receipt Date: 20200423
  Transmission Date: 20200714
  Serious: No
  Sender: FDA-Public Use
  Company Number: US-PFIZER INC-2018104543

PATIENT
  Age: 45 Year
  Sex: Female

DRUGS (3)
  1. LYRICA [Suspect]
     Active Substance: PREGABALIN
     Dosage: 150 MG, 2X/DAY (1 CAPSULE TWO TIMES DAILY)
     Route: 048
     Dates: start: 20190122
  2. LYRICA [Suspect]
     Active Substance: PREGABALIN
     Dosage: 150 MG, 2X/DAY (1 CAPSULE TWO TIMES DAILY)
     Route: 048
     Dates: start: 20190715
  3. LYRICA [Suspect]
     Active Substance: PREGABALIN
     Indication: DIABETIC NEUROPATHY
     Dosage: 150 MG, 2X/DAY (1 CAPSULE TWO TIMES DAILY)
     Route: 048
     Dates: start: 20180816

REACTIONS (2)
  - Neuralgia [Unknown]
  - Pain [Unknown]
